FAERS Safety Report 10153269 (Version 1)
Quarter: 2014Q2

REPORT INFORMATION
  Report Type: Spontaneous
  Country: US (occurrence: US)
  Receive Date: 20140505
  Receipt Date: 20140505
  Transmission Date: 20141212
  Serious: Yes (Other)
  Sender: FDA-Public Use
  Company Number: US-MYLANLABS-2014S1010075

PATIENT
  Sex: Male

DRUGS (1)
  1. FLUVASTATIN [Suspect]

REACTIONS (1)
  - Cerebrovascular accident [Not Recovered/Not Resolved]
